FAERS Safety Report 7024986 (Version 10)
Quarter: 2014Q3

REPORT INFORMATION
  Report Type: Report from Study
  Country: CA (occurrence: CA)
  Receive Date: 20090616
  Receipt Date: 20140806
  Transmission Date: 20150326
  Serious: Yes (Hospitalization, Other)
  Sender: FDA-Public Use
  Company Number: PHHY2009CA22381

PATIENT
  Age: 45 Year
  Sex: Male

DRUGS (15)
  1. EXJADE [Suspect]
     Active Substance: DEFERASIROX
     Dosage: 2000 MG
     Route: 048
     Dates: start: 201110
  2. EXJADE [Suspect]
     Active Substance: DEFERASIROX
     Dosage: 1000 MG
     Route: 048
  3. CITALOPRAM [Concomitant]
     Active Substance: CITALOPRAM HYDROBROMIDE
     Dosage: UNK UKN, UNK
  4. HYDROMORPHONE [Concomitant]
     Active Substance: HYDROMORPHONE
     Dosage: 12 MG, BID
  5. PANTOPRAZOLE [Concomitant]
     Active Substance: PANTOPRAZOLE SODIUM
     Dosage: UNK UKN, UNK
  6. NABILONE [Concomitant]
     Active Substance: NABILONE
     Dosage: UNK UKN, UNK
  7. CORTISONE [Concomitant]
     Active Substance: CORTISONE\HYDROCORTISONE
     Dosage: UNK UKN, UNK
  8. MIRTAZAPINE. [Concomitant]
     Active Substance: MIRTAZAPINE
     Dosage: UNK UKN, UNK
  9. EXJADE [Suspect]
     Active Substance: DEFERASIROX
     Dosage: UNK UKN, UNK
     Route: 048
  10. EXJADE [Suspect]
     Active Substance: DEFERASIROX
     Dosage: 1500 MG
     Route: 048
  11. EXJADE [Suspect]
     Active Substance: DEFERASIROX
     Indication: THALASSAEMIA
     Dosage: 1500 MG
     Route: 048
     Dates: start: 2009
  12. CARBAMAZEPINE. [Concomitant]
     Active Substance: CARBAMAZEPINE
     Dosage: 1.5 DF, (? TAB TID)
  13. METHADONE [Concomitant]
     Active Substance: METHADONE HYDROCHLORIDE
     Dosage: UNK UKN, UNK
  14. GABAPENTIN. [Concomitant]
     Active Substance: GABAPENTIN
     Indication: PAIN
     Dosage: 300 MG, TID
  15. SEROQUEL [Concomitant]
     Active Substance: QUETIAPINE FUMARATE
     Dosage: UNK UKN, UNK

REACTIONS (15)
  - Asthenia [Unknown]
  - Constipation [Unknown]
  - Muscle spasms [Unknown]
  - Haemoglobin decreased [Unknown]
  - Hypoacusis [Unknown]
  - Serum ferritin decreased [Unknown]
  - Weight decreased [Unknown]
  - Vomiting [Unknown]
  - Influenza [Unknown]
  - Dysuria [Unknown]
  - Fatigue [Unknown]
  - Visual acuity reduced [Unknown]
  - Abdominal pain upper [Unknown]
  - Diarrhoea [Unknown]
  - Abdominal distension [Unknown]

NARRATIVE: CASE EVENT DATE: 201112
